FAERS Safety Report 9571444 (Version 1)
Quarter: 2013Q4

REPORT INFORMATION
  Report Type: Spontaneous
  Country: US (occurrence: US)
  Receive Date: 20131001
  Receipt Date: 20131001
  Transmission Date: 20140711
  Serious: No
  Sender: FDA-Public Use
  Company Number: US-BAYER-2013-117562

PATIENT
  Age: 74 Year
  Sex: Male

DRUGS (1)
  1. MAGNEVIST [Suspect]
     Indication: IMAGING PROCEDURE
     Dosage: 15 ML, ONCE
     Dates: start: 20130926, end: 20130926

REACTIONS (1)
  - Paraesthesia oral [Recovered/Resolved]
